FAERS Safety Report 8502009 (Version 4)
Quarter: 2014Q1

REPORT INFORMATION
  Report Type: Report from Study
  Country: US (occurrence: US)
  Receive Date: 20120410
  Receipt Date: 20140109
  Transmission Date: 20141002
  Serious: Yes (Death, Hospitalization)
  Sender: FDA-Public Use
  Company Number: PHHO2011US04798

PATIENT
  Age: 66 Year
  Sex: Female
  Weight: 89 kg

DRUGS (12)
  1. TASIGNA [Suspect]
     Indication: METASTATIC MALIGNANT MELANOMA
     Dosage: 400 MG, BID
     Route: 048
     Dates: start: 20101216, end: 20110310
  2. TASIGNA [Suspect]
     Dosage: 100 MG, BID
     Route: 048
     Dates: start: 20110311, end: 20110415
  3. INSULIN [Concomitant]
     Indication: DIABETES MELLITUS
     Dosage: PRN
     Dates: start: 20110217
  4. INSULIN [Concomitant]
     Indication: HYPERGLYCAEMIA
  5. AUGMENTIN [Concomitant]
     Indication: PNEUMONIA
     Dosage: 70 MG, QD
     Route: 048
     Dates: start: 20110106
  6. BENADRYL [Concomitant]
     Indication: HYPERSENSITIVITY
     Dosage: 4 DF, PRN
     Route: 048
     Dates: start: 20110310
  7. ZOLPIDEM [Concomitant]
     Indication: INSOMNIA
     Dosage: 10 MG, DAILY
     Route: 048
     Dates: start: 20110128
  8. AVELOX [Concomitant]
     Indication: ANTIBIOTIC THERAPY
     Dosage: 400 MG, QD
     Route: 048
     Dates: start: 20110303, end: 20110310
  9. ASPIRIN [Concomitant]
     Indication: PAIN
     Dosage: 325 MG, DAILY
     Route: 048
     Dates: start: 20100706
  10. FENTANYL [Concomitant]
     Indication: PAIN
     Dosage: 200 MG, ONCE 72 HOUS
     Dates: start: 20110314
  11. METOPROLOL [Concomitant]
     Indication: HYPERTENSION
     Dosage: 25 MG, DAILY
     Route: 048
     Dates: start: 20100103
  12. HYDROXYZINE [Concomitant]
     Indication: PRURITUS
     Dosage: 10 MG, DAILY
     Route: 048
     Dates: start: 20110314

REACTIONS (4)
  - Malignant melanoma [Fatal]
  - Herpes zoster cutaneous disseminated [Recovering/Resolving]
  - Hyperglycaemia [Not Recovered/Not Resolved]
  - Malignant neoplasm progression [Recovered/Resolved]
